FAERS Safety Report 6745845-8 (Version None)
Quarter: 2010Q2

REPORT INFORMATION
  Report Type: 
  Country: None (occurrence: None)
  Receive Date: 20100528
  Receipt Date: 20100520
  Transmission Date: 20101027
  Serious: Yes (Hospitalization)
  Sender: FDA-Public Use
  Company Number: FR-EISAI INC.-E3810-03673-SPO-FR

PATIENT
  Sex: Male

DRUGS (6)
  1. PARIET (RABEPRAZOLE) [Suspect]
     Indication: BACK PAIN
     Dosage: UNKNOWN
     Route: 048
     Dates: start: 20100224, end: 20100305
  2. BI-PROFENID [Suspect]
     Indication: BACK PAIN
     Route: 048
     Dates: start: 20100224, end: 20100405
  3. TETRAZEPAM [Suspect]
     Indication: BACK PAIN
     Route: 048
     Dates: start: 20100224, end: 20100405
  4. DAFALGAN [Suspect]
     Indication: BACK PAIN
     Dosage: UNKNOWN
     Route: 048
     Dates: start: 20100224, end: 20100405
  5. IXPRIM [Suspect]
     Dosage: UNKNOWN
     Route: 048
     Dates: start: 20100303, end: 20100305
  6. TAHOR [Suspect]
     Route: 048
     Dates: start: 20100227

REACTIONS (5)
  - HEADACHE [None]
  - HEMIANOPIA [None]
  - HYPERTENSION [None]
  - INTRACRANIAL PRESSURE INCREASED [None]
  - REVERSIBLE POSTERIOR LEUKOENCEPHALOPATHY SYNDROME [None]
